FAERS Safety Report 6624078-X (Version None)
Quarter: 2010Q1

REPORT INFORMATION
  Report Type: 
  Country: None (occurrence: None)
  Receive Date: 20100305
  Receipt Date: 20100218
  Transmission Date: 20100710
  Serious: Yes (Other)
  Sender: FDA-Public Use
  Company Number: FKO201000043

PATIENT
  Age: 31 Year
  Sex: Male

DRUGS (2)
  1. OXALIPLATIN [Suspect]
     Indication: COLORECTAL CANCER
  2. XELODA (CAPECITABINE) (CAPECITABINE) [Concomitant]

REACTIONS (1)
  - PERIPHERAL ISCHAEMIA [None]
